FAERS Safety Report 18202396 (Version 1)
Quarter: 2020Q3

REPORT INFORMATION
  Report Type: Spontaneous
  Country: US (occurrence: US)
  Receive Date: 20200827
  Receipt Date: 20200827
  Transmission Date: 20201103
  Serious: Yes (Death)
  Sender: FDA-Public Use
  Company Number: None

PATIENT
  Age: 84 Year
  Sex: Male
  Weight: 72 kg

DRUGS (1)
  1. APIXABAN [Suspect]
     Active Substance: APIXABAN
     Route: 048
     Dates: start: 20200109, end: 20200402

REACTIONS (3)
  - Haemoglobin decreased [None]
  - Haematochezia [None]
  - Vomiting [None]

NARRATIVE: CASE EVENT DATE: 20200402
